FAERS Safety Report 12375646 (Version 1)
Quarter: 2016Q2

REPORT INFORMATION
  Report Type: Spontaneous
  Country: None (occurrence: FI)
  Receive Date: 20160517
  Receipt Date: 20160517
  Transmission Date: 20160815
  Serious: Yes (Hospitalization, Other)
  Sender: FDA-Public Use
  Company Number: FI-TEVA-660867ISR

PATIENT
  Age: 30 Year
  Sex: Male

DRUGS (5)
  1. MELOXICAM TABLET [Suspect]
     Active Substance: MELOXICAM
     Indication: BACK PAIN
     Dosage: 15 MILLIGRAM DAILY;
     Route: 048
     Dates: start: 20160210, end: 20160219
  2. SIRDALUD [Concomitant]
     Active Substance: TIZANIDINE
     Dates: start: 20160229
  3. PANADOL FORTE [Concomitant]
     Active Substance: ACETAMINOPHEN\CAFFEINE
     Dates: start: 20160229
  4. ESOMEPRAZOLE MAGNESIUM. [Concomitant]
     Active Substance: ESOMEPRAZOLE MAGNESIUM
     Dosage: GASTRO-RESISTANT TABLET
     Dates: start: 20160310
  5. VOLTAREN [Suspect]
     Active Substance: DICLOFENAC SODIUM
     Indication: BACK PAIN
     Dosage: 150 MILLIGRAM DAILY;
     Route: 048
     Dates: start: 20160310, end: 20160311

REACTIONS (6)
  - Abdominal pain [Unknown]
  - Burning sensation [Unknown]
  - Large intestinal ulcer haemorrhage [Not Recovered/Not Resolved]
  - Feeling abnormal [Unknown]
  - Inflammatory bowel disease [Unknown]
  - Haematochezia [Unknown]

NARRATIVE: CASE EVENT DATE: 20160311
